FAERS Safety Report 14818390 (Version 1)
Quarter: 2018Q2

REPORT INFORMATION
  Report Type: Spontaneous
  Country: GB (occurrence: GB)
  Receive Date: 20180427
  Receipt Date: 20180427
  Transmission Date: 20180711
  Serious: Yes (Other)
  Sender: FDA-Public Use
  Company Number: GB-TEVA-2018-GB-886252

PATIENT
  Age: 68 Year
  Sex: Female

DRUGS (1)
  1. VENLAFAXINE [Suspect]
     Active Substance: VENLAFAXINE HYDROCHLORIDE
     Dosage: 375 MILLIGRAM DAILY; 150MGS TWICE DAILY AS PRESCRIBED PLUS 75MGS EACH DAY.

REACTIONS (12)
  - Gait disturbance [Unknown]
  - Accidental overdose [Unknown]
  - Feeling hot [Unknown]
  - Dizziness [Unknown]
  - Tremor [Unknown]
  - Disturbance in attention [Unknown]
  - Disorientation [Unknown]
  - Slow speech [Unknown]
  - Headache [Unknown]
  - Confusional state [Unknown]
  - Decreased appetite [Unknown]
  - Malaise [Unknown]

NARRATIVE: CASE EVENT DATE: 20170426
